FAERS Safety Report 10336875 (Version 2)
Quarter: 2014Q3

REPORT INFORMATION
  Report Type: Spontaneous
  Country: US (occurrence: US)
  Receive Date: 20140723
  Receipt Date: 20140723
  Transmission Date: 20150326
  Serious: No
  Sender: FDA-Public Use
  Company Number: US-UNITED THERAPEUTICS-UTC-044330

PATIENT
  Sex: Female
  Weight: 58.05 kg

DRUGS (3)
  1. TYVASO [Suspect]
     Active Substance: TREPROSTINIL
     Dosage: 18-54 MICROGRAMS
     Dates: start: 20131204
  2. LETAIRIS [Concomitant]
     Active Substance: AMBRISENTAN
  3. ADCIRCA [Concomitant]
     Active Substance: TADALAFIL

REACTIONS (7)
  - Cough [Unknown]
  - Chest discomfort [Unknown]
  - Tremor [Unknown]
  - Asthenia [Unknown]
  - Dysphonia [Unknown]
  - Fatigue [Unknown]
  - Chills [Unknown]
